FAERS Safety Report 13251078 (Version 9)
Quarter: 2018Q3

REPORT INFORMATION
  Report Type: Spontaneous
  Country: IT (occurrence: IT)
  Receive Date: 20170220
  Receipt Date: 20180805
  Transmission Date: 20181010
  Serious: Yes (Hospitalization, Other)
  Sender: FDA-Public Use
  Company Number: IT-BIOGEN-2017BI00360289

PATIENT
  Age: 46 Year
  Sex: Male
  Weight: 85 kg

DRUGS (6)
  1. VALSARTAN. [Concomitant]
     Active Substance: VALSARTAN
     Indication: HYPERTENSION
     Route: 048
  2. VITAMIN D [Concomitant]
     Active Substance: CHOLECALCIFEROL
     Indication: PRODUCT USED FOR UNKNOWN INDICATION
     Route: 065
  3. VITAMIN B [Concomitant]
     Active Substance: VITAMIN B
     Indication: PRODUCT USED FOR UNKNOWN INDICATION
     Route: 065
  4. TECFIDERA [Suspect]
     Active Substance: DIMETHYL FUMARATE
     Indication: MULTIPLE SCLEROSIS
     Dosage: MAINTENANCE DOSE
     Route: 048
     Dates: start: 20151009
  5. DOXAZOSIN [Concomitant]
     Active Substance: DOXAZOSIN\DOXAZOSIN MESYLATE
     Indication: HYPERTENSION
     Route: 048
  6. RIVOTRIL [Concomitant]
     Active Substance: CLONAZEPAM
     Indication: INSOMNIA
     Route: 065

REACTIONS (18)
  - Pain in extremity [Unknown]
  - Sciatica [Unknown]
  - Alcoholism [Unknown]
  - Muscular weakness [Unknown]
  - Sacral radiculopathy [Unknown]
  - Road traffic accident [Recovered/Resolved]
  - Limb injury [Unknown]
  - Tenosynovitis [Unknown]
  - Weight decreased [Unknown]
  - Spinal column injury [Unknown]
  - Intervertebral disc protrusion [Unknown]
  - Panic attack [Unknown]
  - Insomnia [Unknown]
  - Gait disturbance [Unknown]
  - Depression [Unknown]
  - Multiple sclerosis relapse [Unknown]
  - Nuclear magnetic resonance imaging abnormal [Unknown]
  - Spondylopathy traumatic [Unknown]

NARRATIVE: CASE EVENT DATE: 20161006
